FAERS Safety Report 6607585-5 (Version None)
Quarter: 2010Q1

REPORT INFORMATION
  Report Type: 
  Country: None (occurrence: None)
  Receive Date: 20100217
  Receipt Date: 20100203
  Transmission Date: 20100710
  Serious: Yes (Hospitalization)
  Sender: FDA-Public Use
  Company Number: OMX-2010-00010

PATIENT

DRUGS (2)
  1. EVICEL [Suspect]
     Indication: PROSTATECTOMY
     Dosage: DRIPPED ONTO TISSUE
     Dates: start: 20100120
  2. LOVENOX [Concomitant]

REACTIONS (1)
  - EMBOLIC STROKE [None]
